FAERS Safety Report 7260463-3 (Version None)
Quarter: 2011Q1

REPORT INFORMATION
  Report Type: 
  Country: None (occurrence: None)
  Receive Date: 20110130
  Receipt Date: 20101110
  Transmission Date: 20110831
  Serious: No
  Sender: FDA-Public Use
  Company Number: US-ABBOTT-10P-163-0684523-00

PATIENT
  Sex: Female
  Weight: 76.272 kg

DRUGS (8)
  1. HUMIRA [Suspect]
     Indication: RHEUMATOID ARTHRITIS
     Dates: start: 20091201, end: 20101021
  2. AZOPT [Concomitant]
     Indication: GLAUCOMA
     Dates: start: 19950101
  3. METFORMIN [Concomitant]
     Indication: PRODUCT USED FOR UNKNOWN INDICATION
     Dates: start: 20010101
  4. SIMVASTATIN [Concomitant]
     Indication: BLOOD CHOLESTEROL
     Dates: start: 20080101
  5. GLYBURIDE [Concomitant]
     Indication: PRODUCT USED FOR UNKNOWN INDICATION
     Dates: start: 20090101
  6. LUMIGAN [Concomitant]
     Indication: GLAUCOMA
     Dates: start: 19950101
  7. METHOTREXATE [Concomitant]
     Indication: PRODUCT USED FOR UNKNOWN INDICATION
  8. TIMOLOL [Concomitant]
     Indication: GLAUCOMA
     Dates: start: 19950101

REACTIONS (3)
  - RASH ERYTHEMATOUS [None]
  - ARTHRALGIA [None]
  - PAIN IN EXTREMITY [None]
